FAERS Safety Report 4375427-7 (Version None)
Quarter: 2004Q2

REPORT INFORMATION
  Report Type: 
  Country: None (occurrence: None)
  Receive Date: 20040610
  Receipt Date: 20040603
  Transmission Date: 20050107
  Serious: Yes (Death, Hospitalization)
  Sender: FDA-Public Use
  Company Number: 200415656GDDC

PATIENT
  Age: 72 Year
  Sex: Female

DRUGS (1)
  1. CLEXANE [Suspect]

REACTIONS (1)
  - POSTOPERATIVE THROMBOSIS [None]
